FAERS Safety Report 6903940-4 (Version None)
Quarter: 2010Q3

REPORT INFORMATION
  Report Type: 
  Country: None (occurrence: None)
  Receive Date: 20100804
  Receipt Date: 20090206
  Transmission Date: 20110219
  Serious: No
  Sender: FDA-Public Use
  Company Number: US-PFIZER INC-2009167375

PATIENT
  Sex: Female
  Weight: 40.8 kg

DRUGS (4)
  1. LYRICA [Suspect]
     Indication: NEUROPATHY PERIPHERAL
     Dosage: 25 MG, 1X/DAY
     Route: 048
     Dates: start: 20080101, end: 20080101
  2. VALIUM [Concomitant]
     Dosage: UNK
  3. AMBIEN [Concomitant]
     Dosage: UNK
  4. IBUPROFEN [Concomitant]
     Dosage: UNK

REACTIONS (6)
  - ALOPECIA [None]
  - BLOOD TRIGLYCERIDES INCREASED [None]
  - DIPLOPIA [None]
  - PLATELET COUNT INCREASED [None]
  - VISION BLURRED [None]
  - WHITE BLOOD CELL COUNT INCREASED [None]
